FAERS Safety Report 8860509 (Version 2)
Quarter: 2012Q4

REPORT INFORMATION
  Report Type: 
  Country: DE (occurrence: DE)
  Receive Date: 20121025
  Receipt Date: 20121026
  Transmission Date: 20130627
  Serious: Yes (Death, Hospitalization)
  Sender: FDA-Public Use
  Company Number: PHHY2012DE073965

PATIENT
  Age: 56 Year
  Sex: Female

DRUGS (14)
  1. AFINITOR [Suspect]
     Indication: BREAST CANCER METASTATIC
     Dosage: 10 mg, daily
     Route: 048
     Dates: start: 20120716, end: 201208
  2. EXEMESTANE [Concomitant]
     Dosage: Once daily in the night
  3. BISOPROLOL [Concomitant]
     Indication: HYPERTENSION
     Dosage: 0.5 DF once in the morning
  4. PANTOPRAZOLE [Concomitant]
     Dosage: 1 DF Once daily in the night
  5. TEVACIDOL [Concomitant]
     Dosage: 1 DF once in the afternoon
  6. FENTANYL [Concomitant]
     Dosage: change every 2 days
  7. LYRICA [Concomitant]
     Dosage: Once daily in the night
  8. MAGNESIUM VERLA [Concomitant]
     Dosage: once in morning and once in night
  9. DOMPERIDONE [Concomitant]
     Indication: NAUSEA
     Dosage: once in morning, once in afternoon and once in njight
  10. MOVICOL [Concomitant]
     Dosage: once in morning, once in afternoon and once in njight
  11. HALDOL [Concomitant]
     Indication: NAUSEA
     Dosage: 5 drops in the morning-midday-evening and night
  12. SEVREDOL [Concomitant]
     Indication: PAIN
     Dosage: 20 mg, UNK
  13. ARCOXIA [Concomitant]
     Indication: PAIN
     Dosage: 1 DF once in the afternoon
  14. BONDRONATE [Concomitant]
     Dosage: Every 4 weeks
     Route: 042

REACTIONS (3)
  - Haemolysis [Fatal]
  - Anaemia [Recovering/Resolving]
  - Thrombocytopenia [Recovering/Resolving]
